FAERS Safety Report 26117394 (Version 2)
Quarter: 2025Q4

REPORT INFORMATION
  Report Type: Spontaneous
  Country: AR (occurrence: AR)
  Receive Date: 20251203
  Receipt Date: 20251210
  Transmission Date: 20260117
  Serious: Yes (Other)
  Sender: UCB
  Company Number: AR-GSK-AR2025AMR152133

PATIENT
  Age: 45 Year

DRUGS (1)
  1. KEPPRA [Suspect]
     Active Substance: LEVETIRACETAM
     Indication: Product used for unknown indication
     Dosage: 500 MILLIGRAM, 2X/DAY (BID)

REACTIONS (5)
  - Meningioma [Unknown]
  - Dizziness [Unknown]
  - Alopecia [Unknown]
  - Balance disorder [Unknown]
  - Loss of personal independence in daily activities [Unknown]
